FAERS Safety Report 7111752-4 (Version None)
Quarter: 2010Q4

REPORT INFORMATION
  Report Type: 
  Country: None (occurrence: None)
  Receive Date: 20101118
  Receipt Date: 20101110
  Transmission Date: 20110411
  Serious: Yes (Hospitalization)
  Sender: FDA-Public Use
  Company Number: US-AMGEN-KDL411567

PATIENT

DRUGS (2)
  1. ENBREL [Suspect]
     Indication: RHEUMATOID ARTHRITIS
     Dosage: 50 MG, QWK
     Route: 058
     Dates: start: 20001120
  2. ENBREL [Suspect]
     Dates: start: 20001120

REACTIONS (3)
  - COLITIS ISCHAEMIC [None]
  - DERMATITIS CONTACT [None]
  - SARCOIDOSIS [None]
